FAERS Safety Report 10717653 (Version 2)
Quarter: 2015Q1

REPORT INFORMATION
  Report Type: Spontaneous
  Country: JP (occurrence: JP)
  Receive Date: 20150116
  Receipt Date: 20150130
  Transmission Date: 20150721
  Serious: Yes (Death)
  Sender: FDA-Public Use
  Company Number: JP-SA-2015SA004527

PATIENT
  Age: 64 Year
  Sex: Male

DRUGS (3)
  1. THYMOGLOBULINE [Suspect]
     Active Substance: LAPINE T-LYMPHOCYTE IMMUNE GLOBULIN
     Indication: APLASTIC ANAEMIA
     Route: 042
     Dates: start: 20141219, end: 20141223
  2. CICLOSPORIN [Concomitant]
     Active Substance: CYCLOSPORINE
  3. GRAN [Concomitant]
     Active Substance: FILGRASTIM

REACTIONS (1)
  - Disease progression [Fatal]
